FAERS Safety Report 10244863 (Version 1)
Quarter: 2014Q2

REPORT INFORMATION
  Report Type: Spontaneous
  Country: US (occurrence: None)
  Receive Date: 20140616
  Receipt Date: 20140616
  Transmission Date: 20141212
  Serious: No
  Sender: FDA-Public Use
  Company Number: None

PATIENT
  Age: 48 Year
  Sex: Female
  Weight: 72.58 kg

DRUGS (1)
  1. ENALAPRIL MALEATE [Suspect]
     Indication: HYPERTENSION
     Dosage: 1 PILL  ONCE DAILY  TAKEN BY MOUTH
     Route: 048

REACTIONS (3)
  - Swollen tongue [None]
  - Lymphadenopathy [None]
  - Discomfort [None]
